FAERS Safety Report 7048446-X (Version None)
Quarter: 2010Q4

REPORT INFORMATION
  Report Type: 
  Country: None (occurrence: None)
  Receive Date: 20101015
  Receipt Date: 20101015
  Transmission Date: 20110411
  Serious: Yes (Death)
  Sender: FDA-Public Use
  Company Number: None

PATIENT
  Age: 45 Year
  Sex: Male
  Weight: 79.3795 kg

DRUGS (6)
  1. FLUTICASONE PROPIONATE [Suspect]
     Indication: NASAL CONGESTION
     Dosage: 2 SPRAYS DAILY NASALLY
     Route: 045
     Dates: start: 20100609, end: 20100730
  2. DEPAKOTE ER [Concomitant]
  3. ZYPREXA [Concomitant]
  4. ZOLOFT [Concomitant]
  5. ASPIRIN [Concomitant]
  6. LISINOPRIL AND HYDROCHLOROTHIAZIDE [Concomitant]

REACTIONS (8)
  - ANGER [None]
  - BACK PAIN [None]
  - COMPLETED SUICIDE [None]
  - DISTURBANCE IN ATTENTION [None]
  - FEELING ABNORMAL [None]
  - HEADACHE [None]
  - INSOMNIA [None]
  - RHINALGIA [None]
